FAERS Safety Report 5349431-6 (Version None)
Quarter: 2007Q2

REPORT INFORMATION
  Report Type: 
  Country: None (occurrence: None)
  Receive Date: 20070504
  Receipt Date: 20060620
  Transmission Date: 20071010
  Serious: Yes (Other)
  Sender: FDA-Public Use
  Company Number: PHEH2006US08019

PATIENT
  Sex: Female

DRUGS (1)
  1. DIOVAN HCT [Suspect]
     Indication: VENTRICULAR HYPERTROPHY
     Dosage: 80 MG VAL/12.5 MG HCT, QD, ORAL
     Route: 048
     Dates: start: 20060301

REACTIONS (2)
  - DIZZINESS [None]
  - HYPOTENSION [None]
